FAERS Safety Report 12882828 (Version 3)
Quarter: 2016Q4

REPORT INFORMATION
  Report Type: Report from Study
  Country: US (occurrence: US)
  Receive Date: 20161025
  Receipt Date: 20161213
  Transmission Date: 20170207
  Serious: Yes (Hospitalization, Other)
  Sender: FDA-Public Use
  Company Number: US-JNJFOC-20160926550

PATIENT
  Age: 74 Year
  Sex: Female
  Weight: 97.52 kg

DRUGS (20)
  1. FARXIGA [Concomitant]
     Active Substance: DAPAGLIFLOZIN PROPANEDIOL
     Dosage: IN THE MORNING
     Route: 065
     Dates: start: 201606
  2. METFORMIN HCL [Concomitant]
     Active Substance: METFORMIN HYDROCHLORIDE
     Dosage: MORNING AND EVENING
     Route: 065
  3. TIZANIDINE. [Concomitant]
     Active Substance: TIZANIDINE
     Indication: MUSCLE RELAXANT THERAPY
     Route: 065
  4. LASIX [Concomitant]
     Active Substance: FUROSEMIDE
     Dosage: IN THE MORNING
     Route: 065
     Dates: start: 201506
  5. METOLAZONE. [Concomitant]
     Active Substance: METOLAZONE
     Dosage: SATURDAY MORNING
     Route: 065
     Dates: start: 201506
  6. VITAMIN D3 [Concomitant]
     Active Substance: CHOLECALCIFEROL
     Dosage: IN THE MORNING
     Route: 065
     Dates: start: 201506
  7. SODIUM CHLORIDE. [Concomitant]
     Active Substance: SODIUM CHLORIDE
     Dosage: IN THE MORNING
  8. MAGNESIUM OXIDE. [Concomitant]
     Active Substance: MAGNESIUM OXIDE
     Dosage: 2 IN THE MORNING, 1 AT NIGHT
     Route: 065
  9. XARELTO [Suspect]
     Active Substance: RIVAROXABAN
     Indication: CEREBROVASCULAR ACCIDENT PROPHYLAXIS
     Dosage: NIGHTLY
     Route: 048
     Dates: start: 20140829
  10. LOVASTATIN. [Concomitant]
     Active Substance: LOVASTATIN
     Dosage: DAILY EVENING ON MONDAY, WEDNESDAY, FRIDAY
     Route: 065
  11. LOVAZA [Concomitant]
     Active Substance: OMEGA-3-ACID ETHYL ESTERS
     Route: 065
     Dates: start: 20140828
  12. COZAAR [Concomitant]
     Active Substance: LOSARTAN POTASSIUM
     Dosage: MORNING AND EVENING
     Route: 065
  13. DIGOXIN. [Concomitant]
     Active Substance: DIGOXIN
     Route: 065
     Dates: start: 20140724
  14. SPIRONOLACTONE. [Concomitant]
     Active Substance: SPIRONOLACTONE
     Dosage: IN THE MORNING
     Route: 065
     Dates: start: 201506
  15. LEVOFLOXACIN. [Concomitant]
     Active Substance: LEVOFLOXACIN
     Route: 065
     Dates: start: 20151027
  16. XARELTO [Suspect]
     Active Substance: RIVAROXABAN
     Indication: ATRIAL FIBRILLATION
     Dosage: NIGHTLY
     Route: 048
     Dates: start: 20140829
  17. TYLENOL [Concomitant]
     Active Substance: ACETAMINOPHEN
     Route: 065
  18. METOPROLOL SUCCINATE. [Concomitant]
     Active Substance: METOPROLOL SUCCINATE
     Dosage: 2 IN THE MORNING AND 2 IN THE EVENING
     Route: 065
  19. GLIMEPIRIDE. [Concomitant]
     Active Substance: GLIMEPIRIDE
     Dosage: MORNING AND EVENING
     Route: 055
  20. WARFARIN [Concomitant]
     Active Substance: WARFARIN
     Route: 065
     Dates: start: 20140828

REACTIONS (7)
  - Anaemia [Unknown]
  - Head injury [Recovered/Resolved]
  - Tooth infection [Unknown]
  - Cardiac failure [Unknown]
  - Fall [Recovered/Resolved]
  - Weight decreased [Unknown]
  - Dental pulp disorder [Unknown]

NARRATIVE: CASE EVENT DATE: 2015
